FAERS Safety Report 6480538-6 (Version None)
Quarter: 2009Q4

REPORT INFORMATION
  Report Type: 
  Country: None (occurrence: None)
  Receive Date: 20091208
  Receipt Date: 20091028
  Transmission Date: 20100525
  Serious: Yes (Hospitalization)
  Sender: FDA-Public Use
  Company Number: US-SANOFI-AVENTIS-2009SA000675

PATIENT
  Age: 83 Year
  Sex: Male

DRUGS (9)
  1. LANTUS [Suspect]
     Indication: TYPE 2 DIABETES MELLITUS
     Dosage: DOSE:35 UNIT(S)
     Route: 058
  2. OPTICLICK [Suspect]
  3. ARICEPT [Concomitant]
     Route: 048
  4. WELLBUTRIN [Concomitant]
     Route: 048
  5. TAMSULOSIN [Concomitant]
     Route: 048
  6. ISORBIDE [Concomitant]
     Route: 048
  7. ATENOLOL [Concomitant]
     Route: 048
  8. VYTORIN [Concomitant]
     Dosage: 10/40 MG DOSE QD AND TOTAL DAILY DOSE.
     Route: 048
  9. NOVOLIN [Concomitant]

REACTIONS (2)
  - PNEUMONIA [None]
  - URINARY TRACT INFECTION [None]
